FAERS Safety Report 6074696-5 (Version None)
Quarter: 2009Q1

REPORT INFORMATION
  Report Type: 
  Country: None (occurrence: None)
  Receive Date: 20090209
  Receipt Date: 20090209
  Transmission Date: 20090719
  Serious: No
  Sender: FDA-Public Use
  Company Number: None

PATIENT

DRUGS (2)
  1. PROCTOSOL HC 2.5% RANBAXY LABS INC [Suspect]
     Indication: ANORECTAL DISORDER
     Dosage: AS NEEDED SMEAR ON RECTUM
     Dates: start: 20021001, end: 20090101
  2. PROCTOSOL HC 2.5% RANBAXY LABS INC [Suspect]
     Indication: HAEMORRHOIDS
     Dosage: AS NEEDED SMEAR ON RECTUM
     Dates: start: 20021001, end: 20090101

REACTIONS (1)
  - RASH MACULAR [None]
